FAERS Safety Report 18922971 (Version 1)
Quarter: 2021Q1

REPORT INFORMATION
  Report Type: Spontaneous
  Country: US (occurrence: US)
  Receive Date: 20210218
  Receipt Date: 20210218
  Transmission Date: 20210420
  Serious: Yes (Hospitalization)
  Sender: FDA-Public Use
  Company Number: None

PATIENT
  Age: 41 Year
  Sex: Female
  Weight: 80.3 kg

DRUGS (2)
  1. TECENTRIQ [Suspect]
     Active Substance: ATEZOLIZUMAB
     Indication: CERVIX CARCINOMA
     Dosage: ROUTE: INFUSION
     Dates: start: 20210113, end: 20210119
  2. SBRT RADIATION [Suspect]
     Active Substance: RADIATION THERAPY
     Indication: CERVIX CARCINOMA
     Dosage: FREQUENCY: 3 FRACTIONS
     Dates: start: 20210126

REACTIONS (3)
  - Fatigue [None]
  - Constipation [None]
  - Pyrexia [None]

NARRATIVE: CASE EVENT DATE: 20210213
